FAERS Safety Report 10402516 (Version 1)
Quarter: 2014Q3

REPORT INFORMATION
  Report Type: Spontaneous
  Country: TW (occurrence: None)
  Receive Date: 20140820
  Receipt Date: 20140820
  Transmission Date: 20150326
  Serious: Yes (Other)
  Sender: FDA-Public Use
  Company Number: IMP_07823_2014

PATIENT
  Sex: Male

DRUGS (2)
  1. BUPROPION (BUPROPION) [Suspect]
     Active Substance: BUPROPION
     Indication: MAJOR DEPRESSION
  2. HYPNOTICS AND SEDATIVES (UNKNOWN) [Concomitant]

REACTIONS (2)
  - Sexual dysfunction [None]
  - Erectile dysfunction [None]
